FAERS Safety Report 14697308 (Version 1)
Quarter: 2018Q1

REPORT INFORMATION
  Report Type: Spontaneous
  Country: US (occurrence: US)
  Receive Date: 20180330
  Receipt Date: 20180330
  Transmission Date: 20180509
  Serious: No
  Sender: FDA-Public Use
  Company Number: US-SA-2017SA142152

PATIENT
  Age: 90 Year
  Sex: Female

DRUGS (2)
  1. ALLEGRA ALLERGY [Suspect]
     Active Substance: FEXOFENADINE HYDROCHLORIDE
     Indication: HYPERSENSITIVITY
     Route: 048
     Dates: start: 20170728, end: 20170730
  2. ALLEGRA ALLERGY [Suspect]
     Active Substance: FEXOFENADINE HYDROCHLORIDE
     Indication: VERTIGO
     Route: 048
     Dates: start: 20170728, end: 20170730

REACTIONS (4)
  - Expired product administered [Unknown]
  - Poor quality sleep [Unknown]
  - Intentional product misuse [Unknown]
  - Malaise [Unknown]
